FAERS Safety Report 9025163 (Version 2)
Quarter: 2013Q2

REPORT INFORMATION
  Report Type: Spontaneous
  Country: US (occurrence: US)
  Receive Date: 20130122
  Receipt Date: 20130621
  Transmission Date: 20140414
  Serious: No
  Sender: FDA-Public Use
  Company Number: US-009507513-1301USA010293

PATIENT
  Age: 8 Year
  Sex: Male
  Weight: 47.62 kg

DRUGS (2)
  1. CLARITIN [Suspect]
     Indication: HYPERSENSITIVITY
     Dosage: 20 MG, ONCE
     Route: 048
     Dates: start: 20130109
  2. CLARITIN [Suspect]
     Indication: MEDICAL OBSERVATION
     Dosage: UNK, PRN
     Route: 048
     Dates: start: 2006, end: 2013

REACTIONS (2)
  - Accidental overdose [Unknown]
  - No adverse event [Unknown]
